FAERS Safety Report 7909137-3 (Version None)
Quarter: 2011Q4

REPORT INFORMATION
  Report Type: 
  Country: None (occurrence: None)
  Receive Date: 20111111
  Receipt Date: 20101110
  Transmission Date: 20120403
  Serious: No
  Sender: FDA-Public Use
  Company Number: US-GLAXOSMITHKLINE-A0891839A

PATIENT
  Age: 64 Year
  Sex: Male

DRUGS (5)
  1. ASPIRIN [Concomitant]
  2. CRESTOR [Concomitant]
  3. OMEPRAZOLE [Concomitant]
  4. CARVEDILOL [Suspect]
     Indication: MYOCARDIAL INFARCTION
     Dosage: 6.25MG TWICE PER DAY
     Route: 048
     Dates: start: 20081101
  5. LISINOPRIL [Concomitant]

REACTIONS (3)
  - ASTHENIA [None]
  - CARDIAC FLUTTER [None]
  - DIZZINESS [None]
